FAERS Safety Report 13586358 (Version 1)
Quarter: 2017Q2

REPORT INFORMATION
  Report Type: Spontaneous
  Country: TR (occurrence: US)
  Receive Date: 20170526
  Receipt Date: 20170526
  Transmission Date: 20170830
  Serious: Yes (Disabling, Other)
  Sender: FDA-Public Use
  Company Number: TR-AMNEAL PHARMACEUTICALS-2017AMN00642

PATIENT
  Age: 29 Year
  Sex: Male

DRUGS (1)
  1. SILDENAFIL. [Suspect]
     Active Substance: SILDENAFIL
     Indication: PULMONARY ARTERIAL HYPERTENSION
     Dosage: FOR NEARLY 2 YEARS, 2-3 TIMES A DAY
     Route: 048

REACTIONS (4)
  - Cerebral venous thrombosis [Unknown]
  - Papilloedema [Unknown]
  - Visual acuity reduced [Unknown]
  - Headache [Unknown]
